FAERS Safety Report 21611374 (Version 1)
Quarter: 2022Q4

REPORT INFORMATION
  Report Type: Spontaneous
  Country: GB (occurrence: GB)
  Receive Date: 20221117
  Receipt Date: 20221117
  Transmission Date: 20230113
  Serious: Yes (Other)
  Sender: FDA-Public Use
  Company Number: GB-MHRA-MED-202211131853289960-DLBGY

PATIENT
  Age: 71 Year
  Sex: Male
  Weight: 54 kg

DRUGS (4)
  1. TAMSULOSIN [Suspect]
     Active Substance: TAMSULOSIN
     Indication: Adverse drug reaction
     Dosage: .4 MILLIGRAM DAILY;
     Route: 065
     Dates: start: 20221106, end: 20221106
  2. TAMSULOSIN [Suspect]
     Active Substance: TAMSULOSIN
     Indication: Prostatic disorder
  3. ASPIRIN [Concomitant]
     Active Substance: ASPIRIN
     Indication: Adverse drug reaction
     Dates: start: 20170226
  4. ASPIRIN [Concomitant]
     Active Substance: ASPIRIN
     Indication: Cardiac operation

REACTIONS (1)
  - Syncope [Recovered/Resolved with Sequelae]

NARRATIVE: CASE EVENT DATE: 20221106
